FAERS Safety Report 15497169 (Version 1)
Quarter: 2018Q4

REPORT INFORMATION
  Report Type: Spontaneous
  Country: FR (occurrence: FR)
  Receive Date: 20181015
  Receipt Date: 20181015
  Transmission Date: 20190205
  Serious: Yes (Hospitalization)
  Sender: FDA-Public Use
  Company Number: FR-AUROBINDO-AUR-APL-2018-049934

PATIENT
  Age: 22 Year
  Sex: Female
  Weight: 75 kg

DRUGS (2)
  1. IBUPROFEN. [Suspect]
     Active Substance: IBUPROFEN
     Indication: POISONING DELIBERATE
     Dosage: 3.4 GRAM, ONCE A DAY
     Route: 048
     Dates: start: 20180714, end: 20180714
  2. DINOPROSTONE. [Suspect]
     Active Substance: DINOPROSTONE
     Indication: ABORTED PREGNANCY
     Dosage: UNK
     Route: 065
     Dates: start: 20180713, end: 20180713

REACTIONS (4)
  - Headache [Recovered/Resolved]
  - Vertigo [Recovered/Resolved]
  - Abdominal pain upper [Recovered/Resolved]
  - Abortion induced [Not Recovered/Not Resolved]

NARRATIVE: CASE EVENT DATE: 20180713
